FAERS Safety Report 8310770-8 (Version None)
Quarter: 2012Q2

REPORT INFORMATION
  Report Type: 
  Country: None (occurrence: None)
  Receive Date: 20120425
  Receipt Date: 20120418
  Transmission Date: 20120825
  Serious: Yes (Hospitalization)
  Sender: FDA-Public Use
  Company Number: CH-ABBOTT-12P-151-0926494-00

PATIENT
  Age: 35 Year
  Sex: Female

DRUGS (2)
  1. KALETRA [Suspect]
     Indication: HIV INFECTION
     Dosage: 3 IN 1 D, DOSE SCHEMA 1-0-2
     Route: 048
     Dates: start: 20120101, end: 20120209
  2. VIRAMUNE [Suspect]
     Indication: HIV INFECTION
     Route: 048
     Dates: start: 20120101, end: 20120207

REACTIONS (10)
  - FATIGUE [None]
  - NAUSEA [None]
  - DRUG RASH WITH EOSINOPHILIA AND SYSTEMIC SYMPTOMS [None]
  - HEPATOCELLULAR INJURY [None]
  - HEADACHE [None]
  - PRURITUS [None]
  - RASH [None]
  - PYREXIA [None]
  - TRANSAMINASES INCREASED [None]
  - PAIN IN EXTREMITY [None]
